FAERS Safety Report 8507425-3 (Version None)
Quarter: 2012Q3

REPORT INFORMATION
  Report Type: 
  Country: None (occurrence: None)
  Receive Date: 20120712
  Receipt Date: 20120706
  Transmission Date: 20120928
  Serious: Yes (Hospitalization)
  Sender: FDA-Public Use
  Company Number: US-BAYER-2011-084580

PATIENT
  Age: 45 Year
  Sex: Female
  Weight: 72.562 kg

DRUGS (8)
  1. ASCORBIC ACID [Concomitant]
  2. LORAZEPAM [Concomitant]
     Dosage: 0.5 MG, UNK
     Dates: start: 20060811, end: 20120317
  3. YASMIN [Suspect]
     Indication: CONTRACEPTION
     Dosage: UNK
     Dates: start: 20060101, end: 20100601
  4. YAZ [Suspect]
     Indication: CONTRACEPTION
     Dosage: UNK
     Dates: start: 20060101, end: 20100601
  5. PRESCRIPTION DIET MEDICATIONS [Concomitant]
  6. DROSPIRENONE AND ETHINYL ESTRADIOL [Suspect]
     Indication: CONTRACEPTION
     Dosage: UNK
     Dates: start: 20081101, end: 20100601
  7. MOTRIN [Concomitant]
  8. HERBAL PREPARATION [Concomitant]

REACTIONS (6)
  - THROMBOSIS [None]
  - INJURY [None]
  - EMOTIONAL DISTRESS [None]
  - DEEP VEIN THROMBOSIS [None]
  - PAIN [None]
  - GENERAL PHYSICAL HEALTH DETERIORATION [None]
